FAERS Safety Report 4900970-9 (Version None)
Quarter: 2006Q1

REPORT INFORMATION
  Report Type: 
  Country: None (occurrence: None)
  Receive Date: 20060201
  Receipt Date: 20060111
  Transmission Date: 20060701
  Serious: Yes (Death, Life-Threatening, Hospitalization)
  Sender: FDA-Public Use
  Company Number: SE200512001366

PATIENT
  Age: 66 Year
  Sex: Female

DRUGS (18)
  1. PEMETREXED [Suspect]
     Indication: LUNG NEOPLASM MALIGNANT
     Dosage: 837.5 MG, INTRAVENOUS
     Route: 042
     Dates: start: 20051121, end: 20051121
  2. VITAMINS NOS (VITAMINS NOS) [Concomitant]
  3. VITAMIN B12 [Concomitant]
  4. LOSEC (OMEPRAZOLE) [Concomitant]
  5. LAXOBERAL (SODIUM PICOSULFATE) [Concomitant]
  6. MYCOSTATIN /NEZ/ (NYSTATIN) [Concomitant]
  7. ASPIRIN [Concomitant]
  8. IMPUGAN (FUROSEMIDE) [Concomitant]
  9. ISOPTIN [Concomitant]
  10. LIPITOR [Concomitant]
  11. DIFLUCAN /UNK/(FLUCONAZOLE) [Concomitant]
  12. ACETAMINOPHEN [Concomitant]
  13. STILNOCT (ZOLPIDEM TARTRATE) [Concomitant]
  14. FOLACIN (CALCIUM PHOSPHATE, FOLIC ACID) [Concomitant]
  15. HUMALOG MIX 25 (INSULIN LISPRO, INSULIN LISPRO PROTAMINE) [Concomitant]
  16. BEHEPAN (CYANOCOBALAMIN) [Concomitant]
  17. PRIMPERAN TAB [Concomitant]
  18. SUSCARD (GLYCERYL TRINITRATE) [Concomitant]

REACTIONS (17)
  - CIRCULATORY COLLAPSE [None]
  - DYSPHAGIA [None]
  - ESCHERICHIA INFECTION [None]
  - FATIGUE [None]
  - FEBRILE NEUTROPENIA [None]
  - FUNGAL INFECTION [None]
  - GENERAL PHYSICAL HEALTH DETERIORATION [None]
  - HAEMOGLOBIN DECREASED [None]
  - MOUTH ULCERATION [None]
  - NUTRITIONAL CONDITION ABNORMAL [None]
  - ORAL INTAKE REDUCED [None]
  - PAIN [None]
  - PLATELET COUNT DECREASED [None]
  - RASH [None]
  - REFUSAL OF TREATMENT BY PATIENT [None]
  - STOMATITIS [None]
  - WHITE BLOOD CELL COUNT DECREASED [None]
